FAERS Safety Report 5447744-0 (Version None)
Quarter: 2007Q3

REPORT INFORMATION
  Report Type: 
  Country: None (occurrence: None)
  Receive Date: 20070910
  Receipt Date: 20070903
  Transmission Date: 20080115
  Serious: Yes (Death, Other)
  Sender: FDA-Public Use
  Company Number: DE-ELI_LILLY_AND_COMPANY-DE200709000079

PATIENT
  Age: 80 Year
  Sex: Female

DRUGS (5)
  1. TERIPARATIDE [Suspect]
     Indication: OSTEOPOROSIS
     Route: 058
     Dates: start: 20061212, end: 20070805
  2. CALCIUM [Concomitant]
  3. VITAMIN D3 [Concomitant]
  4. NOVAMINSULFON [Concomitant]
  5. TRAMADOL HCL [Concomitant]

REACTIONS (3)
  - NEOPLASM MALIGNANT [None]
  - PANCREATIC CARCINOMA [None]
  - SEPSIS [None]
